FAERS Safety Report 8984267 (Version 3)
Quarter: 2013Q1

REPORT INFORMATION
  Report Type: Report from Study
  Country: US (occurrence: US)
  Receive Date: 20121226
  Receipt Date: 20130225
  Transmission Date: 20140127
  Serious: Yes (Other)
  Sender: FDA-Public Use
  Company Number: US-JNJFOC-20121207630

PATIENT
  Sex: Female
  Weight: 57.15 kg

DRUGS (8)
  1. REMICADE [Suspect]
     Indication: ANKYLOSING SPONDYLITIS
     Route: 042
     Dates: start: 201209
  2. REMICADE [Suspect]
     Indication: RHEUMATOID ARTHRITIS
     Route: 042
     Dates: start: 201209
  3. EYE DROPS FOR GLAUCOMA [Concomitant]
     Indication: GLAUCOMA
     Route: 031
  4. METHOTREXATE [Concomitant]
     Route: 065
     Dates: start: 2009, end: 20121031
  5. FLAX SEED OIL [Concomitant]
     Route: 065
  6. CALCIUM [Concomitant]
     Route: 065
  7. FOLIC ACID [Concomitant]
     Dosage: HIGH DOSE
     Route: 065
  8. MAGNESIUM [Concomitant]
     Route: 065

REACTIONS (2)
  - Glaucoma [Not Recovered/Not Resolved]
  - Alopecia [Recovering/Resolving]
